FAERS Safety Report 6490983-0 (Version None)
Quarter: 2009Q4

REPORT INFORMATION
  Report Type: 
  Country: None (occurrence: None)
  Receive Date: 20091211
  Receipt Date: 20091207
  Transmission Date: 20100525
  Serious: Yes (Hospitalization)
  Sender: FDA-Public Use
  Company Number: CZ-ROCHE-626183

PATIENT
  Sex: Male
  Weight: 58 kg

DRUGS (4)
  1. BEVACIZUMAB [Suspect]
     Dosage: STOPPED PERMANENTLY DUE TO PROTEINURIA
     Route: 042
     Dates: start: 20081116, end: 20090401
  2. BEVACIZUMAB [Suspect]
     Route: 042
  3. TORISEL [Suspect]
     Route: 042
     Dates: start: 20081112, end: 20090513
  4. TORISEL [Suspect]
     Route: 042
     Dates: start: 20090520

REACTIONS (2)
  - ANAEMIA [None]
  - GENERAL PHYSICAL HEALTH DETERIORATION [None]
